FAERS Safety Report 14303666 (Version 1)
Quarter: 2017Q4

REPORT INFORMATION
  Report Type: Spontaneous
  Country: US (occurrence: US)
  Receive Date: 20171219
  Receipt Date: 20171219
  Transmission Date: 20180321
  Serious: Yes (Other)
  Sender: FDA-Public Use
  Company Number: US-OTSUKA-21017611

PATIENT
  Sex: Male
  Weight: 74.83 kg

DRUGS (1)
  1. ABILIFY [Suspect]
     Active Substance: ARIPIPRAZOLE
     Indication: BIPOLAR DISORDER
     Dosage: 10 OR 20 MG
     Route: 065

REACTIONS (3)
  - Mania [Unknown]
  - Constipation [Unknown]
  - Irritability [Unknown]
